FAERS Safety Report 4375830-5 (Version None)
Quarter: 2004Q2

REPORT INFORMATION
  Report Type: 
  Country: None (occurrence: None)
  Receive Date: 20040609
  Receipt Date: 20040609
  Transmission Date: 20050107
  Serious: Yes (Life-Threatening)
  Sender: FDA-Public Use
  Company Number: None

PATIENT
  Age: 47 Year
  Sex: Female
  Weight: 82.4639 kg

DRUGS (20)
  1. MYLOTARG [Suspect]
     Indication: ACUTE MYELOID LEUKAEMIA
     Dosage: 11 MG IV/7 MGI V BOLUS
     Route: 040
     Dates: start: 20040507
  2. MYLOTARG [Suspect]
     Indication: ACUTE MYELOID LEUKAEMIA
     Dosage: 11 MG IV/7 MGI V BOLUS
     Route: 040
     Dates: start: 20040515
  3. ARA-C [Suspect]
     Dosage: 370 MG CONT IV
     Route: 042
     Dates: start: 20040508, end: 20040515
  4. ZOVIRAX [Concomitant]
  5. DIFLUCAN [Concomitant]
  6. LEVAQUIN [Concomitant]
  7. AUGMENTIN [Concomitant]
  8. PROTONIX [Concomitant]
  9. RESTORIL [Concomitant]
  10. REGLAN [Concomitant]
  11. CAL. GLUC [Concomitant]
  12. BENADRYL [Concomitant]
  13. ZOFRAN [Concomitant]
  14. TRAZODONE HCL [Concomitant]
  15. TYLENOL [Concomitant]
  16. DILAUDID [Concomitant]
  17. LOPRESSOR [Concomitant]
  18. DECADRON [Concomitant]
  19. SENOKOT [Concomitant]
  20. ALDACTONE [Concomitant]

REACTIONS (3)
  - COMA [None]
  - HAEMORRHAGE INTRACRANIAL [None]
  - HEPATIC ENZYME INCREASED [None]
